FAERS Safety Report 20604722 (Version 1)
Quarter: 2022Q1

REPORT INFORMATION
  Report Type: Spontaneous
  Country: CN (occurrence: None)
  Receive Date: 20220317
  Receipt Date: 20220317
  Transmission Date: 20220423
  Serious: Yes (Death)
  Sender: FDA-Public Use
  Company Number: 2022A113762

PATIENT
  Age: 72 Year
  Sex: Male
  Weight: 58 kg

DRUGS (3)
  1. IMFINZI [Suspect]
     Active Substance: DURVALUMAB
     Indication: Small cell lung cancer extensive stage
     Dosage: 1000 MG / CYCLE ONCE/SINGLE ADMINISTRATION
     Route: 042
     Dates: start: 20211020, end: 20211020
  2. ETOPOSIDE [Concomitant]
     Active Substance: ETOPOSIDE
     Indication: Small cell lung cancer extensive stage
  3. CISPLATIN [Concomitant]
     Active Substance: CISPLATIN
     Indication: Small cell lung cancer extensive stage

REACTIONS (1)
  - Death [Fatal]

NARRATIVE: CASE EVENT DATE: 20220201
